FAERS Safety Report 5076645-5 (Version None)
Quarter: 2006Q3

REPORT INFORMATION
  Report Type: 
  Country: None (occurrence: None)
  Receive Date: 20060810
  Receipt Date: 20060526
  Transmission Date: 20061208
  Serious: Yes (Hospitalization, Other)
  Sender: FDA-Public Use
  Company Number: LB-BAYER-200612173GDS

PATIENT
  Age: 76 Year
  Sex: Male

DRUGS (2)
  1. LEVITRA [Suspect]
     Indication: ERECTILE DYSFUNCTION
     Route: 048
  2. TELMISARTAN [Concomitant]
     Indication: HYPERTENSION

REACTIONS (6)
  - EPILEPSY [None]
  - EYE DISORDER [None]
  - GRAND MAL CONVULSION [None]
  - HYPERTONIA [None]
  - LOSS OF CONSCIOUSNESS [None]
  - OEDEMA PERIPHERAL [None]
